FAERS Safety Report 14477594 (Version 1)
Quarter: 2018Q1

REPORT INFORMATION
  Report Type: Report from Study
  Country: US (occurrence: US)
  Receive Date: 20180201
  Receipt Date: 20180201
  Transmission Date: 20180509
  Serious: No
  Sender: FDA-Public Use
  Company Number: US-EXELIXIS-CABO-17009487

PATIENT
  Sex: Male

DRUGS (1)
  1. CABOMETYX [Suspect]
     Active Substance: CABOZANTINIB S-MALATE
     Indication: RENAL CANCER
     Dosage: 60 MG, QD
     Route: 048
     Dates: start: 20170223, end: 201706

REACTIONS (10)
  - Pain [Unknown]
  - Tooth extraction [Unknown]
  - Dyspnoea exertional [Unknown]
  - Pain in extremity [Unknown]
  - Pathological fracture [Unknown]
  - Neuropathy peripheral [Unknown]
  - Fatigue [Unknown]
  - Constipation [Unknown]
  - Palmar-plantar erythrodysaesthesia syndrome [Unknown]
  - Skin lesion [Unknown]
